FAERS Safety Report 20111800 (Version 1)
Quarter: 2021Q4

REPORT INFORMATION
  Report Type: Other
  Country: DE (occurrence: None)
  Receive Date: 20211125
  Receipt Date: 20211125
  Transmission Date: 20220303
  Serious: Yes (Hospitalization)
  Sender: FDA-Public Use
  Company Number: DE-ROCHE-2959853

PATIENT
  Age: 55 Year
  Sex: Female

DRUGS (1)
  1. OCREVUS [Suspect]
     Active Substance: OCRELIZUMAB
     Indication: Relapsing-remitting multiple sclerosis
     Route: 042
     Dates: start: 201805

REACTIONS (4)
  - Cystitis [Unknown]
  - Alopecia [Unknown]
  - Weight increased [Unknown]
  - B-lymphocyte count decreased [Unknown]
